FAERS Safety Report 5229299-9 (Version None)
Quarter: 2007Q1

REPORT INFORMATION
  Report Type: 
  Country: None (occurrence: None)
  Receive Date: 20061201
  Receipt Date: 20060831
  Transmission Date: 20070707
  Serious: No
  Sender: FDA-Public Use
  Company Number: US200609000624

PATIENT
  Age: 70 Year
  Sex: Female

DRUGS (5)
  1. CYMBALTA [Suspect]
     Indication: DEPRESSION
     Dosage: 30 MG DAILY (1/D)
     Dates: start: 20060801
  2. SYNTHROID [Concomitant]
  3. CRESTOR [Concomitant]
  4. ANTIHYPERTENSIVES [Concomitant]
  5. ZOLOFT [Concomitant]

REACTIONS (3)
  - ASTHENIA [None]
  - DEPRESSION [None]
  - FATIGUE [None]
